FAERS Safety Report 6835288-0 (Version None)
Quarter: 2010Q3

REPORT INFORMATION
  Report Type: 
  Country: None (occurrence: None)
  Receive Date: 20100713
  Receipt Date: 20070405
  Transmission Date: 20110219
  Serious: No
  Sender: FDA-Public Use
  Company Number: US-PFIZER INC-2007028126

PATIENT
  Sex: Male

DRUGS (2)
  1. CHANTIX [Suspect]
     Indication: SMOKING CESSATION THERAPY
     Route: 048
     Dates: start: 20070301
  2. ALCOHOL [Interacting]

REACTIONS (5)
  - AGGRESSION [None]
  - ALCOHOL USE [None]
  - DRUG INTERACTION [None]
  - IRRITABILITY [None]
  - MOOD SWINGS [None]
